FAERS Safety Report 17413169 (Version 1)
Quarter: 2020Q1

REPORT INFORMATION
  Report Type: Spontaneous
  Country: US (occurrence: US)
  Receive Date: 20200212
  Receipt Date: 20200212
  Transmission Date: 20200409
  Serious: Yes (Disabling)
  Sender: FDA-Public Use
  Company Number: None

PATIENT
  Age: 51 Year
  Sex: Female

DRUGS (2)
  1. GADOLINIUM POISONING [Suspect]
     Active Substance: GADOLINIUM
  2. LEVOTHYROXINE 100MG [Concomitant]
     Active Substance: LEVOTHYROXINE

REACTIONS (3)
  - Toxicity to various agents [None]
  - Skin burning sensation [None]
  - Pruritus [None]

NARRATIVE: CASE EVENT DATE: 20160229
